FAERS Safety Report 15838249 (Version 1)
Quarter: 2018Q4

REPORT INFORMATION
  Report Type: Spontaneous
  Country: US (occurrence: US)
  Receive Date: 20181222
  Receipt Date: 20181222
  Transmission Date: 20190205
  Serious: Yes (Death, Hospitalization)
  Sender: FDA-Public Use
  Company Number: None

PATIENT
  Age: 12 Year
  Sex: Male
  Weight: 76.8 kg

DRUGS (5)
  1. METHOTREXATE. [Suspect]
     Active Substance: METHOTREXATE
     Dates: end: 20181130
  2. PREDNISONE. [Suspect]
     Active Substance: PREDNISONE
     Dates: end: 20181130
  3. VINCRISTINE SULFATE. [Suspect]
     Active Substance: VINCRISTINE SULFATE
     Dates: end: 20181116
  4. ONCASPAR [Suspect]
     Active Substance: PEGASPARGASE
     Dates: end: 20181104
  5. CYTARABINE. [Suspect]
     Active Substance: CYTARABINE
     Dates: end: 20181101

REACTIONS (6)
  - Staphylococcal bacteraemia [None]
  - Renal failure [None]
  - Oxygen saturation decreased [None]
  - Dialysis [None]
  - Mucosal haemorrhage [None]
  - Rectal haemorrhage [None]

NARRATIVE: CASE EVENT DATE: 20181201
